FAERS Safety Report 11647999 (Version 3)
Quarter: 2016Q1

REPORT INFORMATION
  Report Type: Spontaneous
  Country: US (occurrence: US)
  Receive Date: 20151021
  Receipt Date: 20160104
  Transmission Date: 20160525
  Serious: No
  Sender: FDA-Public Use
  Company Number: US-ASTRAZENECA-2015SE99015

PATIENT
  Age: 75 Month
  Sex: Female
  Weight: 23.6 kg

DRUGS (2)
  1. PULMICORT FLEXHALER [Suspect]
     Active Substance: BUDESONIDE
     Indication: ASTHMA
     Dosage: 90 MCG 1 PUFF TWICE DAILY
     Route: 055
     Dates: start: 201506
  2. PULMICORT FLEXHALER [Suspect]
     Active Substance: BUDESONIDE
     Indication: ASTHMA
     Dosage: 90 MCG 2 PUFF TWICE DAILY
     Route: 055
     Dates: start: 20150920

REACTIONS (6)
  - Drug administered to patient of inappropriate age [Unknown]
  - Cough [Unknown]
  - Intentional product misuse [Unknown]
  - Asthma [Unknown]
  - Product quality issue [Unknown]
  - Drug dose omission [Unknown]

NARRATIVE: CASE EVENT DATE: 201506
